FAERS Safety Report 9162225 (Version 2)
Quarter: 2013Q1

REPORT INFORMATION
  Report Type: Spontaneous
  Country: US (occurrence: None)
  Receive Date: 20130222
  Receipt Date: 20130314
  Transmission Date: 20140127
  Serious: Yes (Hospitalization)
  Sender: FDA-Public Use
  Company Number: JPI-P-029887

PATIENT
  Age: 71 Year
  Sex: Female
  Weight: 60.78 kg

DRUGS (5)
  1. XYREM (500 MILLIGRAM/MILLILITERS, SOLUTION)(SODIUM OXYBATE) [Suspect]
     Indication: NARCOLEPSY
     Dosage: (2.25 GM, 2  IN 1 D)
     Route: 048
     Dates: start: 2003
  2. PENTAZOCINE AND NALOXONE [Concomitant]
  3. ESOMEPRAZOLE MAGNESIUM [Concomitant]
  4. MONTELUKAST SODIUM [Concomitant]
  5. PROMETHAZINE HYDROCHLORIDE [Concomitant]

REACTIONS (5)
  - Influenza [None]
  - Diarrhoea [None]
  - Headache [None]
  - Pain [None]
  - Pyrexia [None]
